FAERS Safety Report 8594207-X (Version None)
Quarter: 2012Q3

REPORT INFORMATION
  Report Type: 
  Country: None (occurrence: None)
  Receive Date: 20120814
  Receipt Date: 20120807
  Transmission Date: 20120928
  Serious: No
  Sender: FDA-Public Use
  Company Number: US-009507513-1208USA003556

PATIENT

DRUGS (2)
  1. IMPLANON [Suspect]
     Dosage: 1 DF, UNK
     Route: 059
  2. IMPLANON [Suspect]
     Indication: CONTRACEPTION
     Dosage: 1 DF, UNK
     Route: 059
     Dates: start: 20120622

REACTIONS (1)
  - MENORRHAGIA [None]
